FAERS Safety Report 12537777 (Version 2)
Quarter: 2016Q3

REPORT INFORMATION
  Report Type: Spontaneous
  Country: US (occurrence: US)
  Receive Date: 20160707
  Receipt Date: 20160720
  Transmission Date: 20161109
  Serious: No
  Sender: FDA-Public Use
  Company Number: US-PFIZER INC-2016333862

PATIENT
  Age: 36 Year
  Sex: Female
  Weight: 54 kg

DRUGS (7)
  1. PRISTIQ EXTENDED-RELEASE [Suspect]
     Active Substance: DESVENLAFAXINE SUCCINATE
     Indication: PAIN
  2. RINGER-LACTATE [Concomitant]
     Indication: DEHYDRATION
     Dosage: UNK, THREE TIMES A WEEK
     Route: 042
  3. RINGER-LACTATE [Concomitant]
     Indication: MALNUTRITION
  4. SALINE /00075401/ [Concomitant]
     Active Substance: SODIUM CHLORIDE
     Indication: DEHYDRATION
     Dosage: UNK, THREE TIMES A WEEK
     Route: 042
  5. SALINE /00075401/ [Concomitant]
     Active Substance: SODIUM CHLORIDE
     Indication: MALNUTRITION
  6. PRISTIQ EXTENDED-RELEASE [Suspect]
     Active Substance: DESVENLAFAXINE SUCCINATE
     Indication: NAUSEA
  7. PRISTIQ EXTENDED-RELEASE [Suspect]
     Active Substance: DESVENLAFAXINE SUCCINATE
     Indication: IMPAIRED GASTRIC EMPTYING
     Dosage: 200 MG, 2X/DAY
     Dates: start: 201606

REACTIONS (8)
  - Photopsia [Not Recovered/Not Resolved]
  - Condition aggravated [Not Recovered/Not Resolved]
  - Hypotension [Unknown]
  - Product use issue [Not Recovered/Not Resolved]
  - Eye disorder [Not Recovered/Not Resolved]
  - Abnormal dreams [Not Recovered/Not Resolved]
  - Headache [Not Recovered/Not Resolved]
  - Migraine [Not Recovered/Not Resolved]

NARRATIVE: CASE EVENT DATE: 2016
